FAERS Safety Report 6669483-0 (Version None)
Quarter: 2010Q2

REPORT INFORMATION
  Report Type: 
  Country: None (occurrence: None)
  Receive Date: 20100406
  Receipt Date: 20100329
  Transmission Date: 20101027
  Serious: Yes (Other)
  Sender: FDA-Public Use
  Company Number: PHEH2010US03369

PATIENT
  Sex: Female

DRUGS (2)
  1. MIACALCIN [Suspect]
     Dosage: UNK
     Dates: start: 20060315, end: 20081123
  2. DIURETICS [Concomitant]
     Dosage: EVERY DAY ROTATING NOSTRILS

REACTIONS (5)
  - ARTHRITIS [None]
  - DRUG INEFFECTIVE [None]
  - HIP FRACTURE [None]
  - OEDEMA PERIPHERAL [None]
  - PELVIC FRACTURE [None]
